FAERS Safety Report 6422399-7 (Version None)
Quarter: 2009Q4

REPORT INFORMATION
  Report Type: 
  Country: None (occurrence: None)
  Receive Date: 20091030
  Receipt Date: 20091027
  Transmission Date: 20100525
  Serious: Yes (Hospitalization)
  Sender: FDA-Public Use
  Company Number: US-RB-023392-09

PATIENT
  Age: 46 Year
  Sex: Male

DRUGS (2)
  1. SUBOXONE [Suspect]
     Dosage: UNIT DOSE AND FREQUENCY ARE UNKNOWN.
     Route: 065
     Dates: start: 20091019
  2. SUBOXONE [Suspect]
     Dosage: DOSE AND FREQUENCY ARE UNKNOWN
     Route: 065
     Dates: start: 20090801, end: 20091012

REACTIONS (1)
  - OPEN WOUND [None]
